FAERS Safety Report 5822257-2 (Version None)
Quarter: 2008Q3

REPORT INFORMATION
  Report Type: 
  Country: None (occurrence: None)
  Receive Date: 20080725
  Receipt Date: 20080714
  Transmission Date: 20090109
  Serious: Yes (Other)
  Sender: FDA-Public Use
  Company Number: US-ELI_LILLY_AND_COMPANY-US200807002679

PATIENT
  Sex: Male

DRUGS (5)
  1. CYMBALTA [Suspect]
     Dosage: 30 MG, UNK
     Dates: start: 20050101
  2. CYMBALTA [Suspect]
     Dosage: 90 MG, DAILY (1/D)
  3. OXYCODONE HCL [Concomitant]
     Dosage: 15 MG, EVERY 4 HRS
  4. MOTRIN [Concomitant]
     Dosage: 800 MG, AS NEEDED
  5. ANTIHYPERTENSIVES [Concomitant]

REACTIONS (10)
  - AGITATION [None]
  - ANXIETY [None]
  - ARTHRALGIA [None]
  - DEPENDENCE [None]
  - DRUG EFFECT DECREASED [None]
  - GALLBLADDER DISORDER [None]
  - MUSCULAR WEAKNESS [None]
  - NEURALGIA [None]
  - RENAL CANCER [None]
  - SPINAL CORD COMPRESSION [None]
